FAERS Safety Report 5752022-6 (Version None)
Quarter: 2008Q2

REPORT INFORMATION
  Report Type: 
  Country: None (occurrence: None)
  Receive Date: 20080527
  Receipt Date: 20080513
  Transmission Date: 20081010
  Serious: Yes (Congenital Anomaly)
  Sender: FDA-Public Use
  Company Number: 8028572

PATIENT
  Sex: Female

DRUGS (7)
  1. KEPPRA [Suspect]
     Indication: CONVULSION
     Dosage: 3000 MG/ D TRP
     Route: 064
     Dates: start: 20070101, end: 20070816
  2. KEPPRA [Suspect]
     Indication: CONVULSION
     Dosage: 3500 MG/D TRP
     Route: 064
     Dates: start: 20070816, end: 20070903
  3. LAMICTAL [Concomitant]
  4. PROCARDIA [Concomitant]
  5. FOLIC ACID [Concomitant]
  6. VITAMIN TAB [Concomitant]
  7. BETAMETHASONE [Concomitant]

REACTIONS (5)
  - FOETAL GROWTH RETARDATION [None]
  - FOOT DEFORMITY [None]
  - HAEMANGIOMA [None]
  - MATERNAL DRUGS AFFECTING FOETUS [None]
  - PREMATURE BABY [None]
